FAERS Safety Report 25711565 (Version 1)
Quarter: 2025Q3

REPORT INFORMATION
  Report Type: Report from Study
  Country: AR (occurrence: AR)
  Receive Date: 20250821
  Receipt Date: 20250821
  Transmission Date: 20251021
  Serious: Yes (Hospitalization, Other)
  Sender: ABBVIE
  Company Number: AR-ABBVIE-6424908

PATIENT
  Age: 11 Year
  Sex: Male

DRUGS (1)
  1. HUMIRA [Suspect]
     Active Substance: ADALIMUMAB
     Indication: Crohn^s disease
     Dosage: CITRATE FREE
     Route: 058
     Dates: start: 20240205

REACTIONS (2)
  - Pulmonary oedema [Not Recovered/Not Resolved]
  - Intra-abdominal fluid collection [Not Recovered/Not Resolved]

NARRATIVE: CASE EVENT DATE: 20250813
